FAERS Safety Report 26055629 (Version 2)
Quarter: 2025Q4

REPORT INFORMATION
  Report Type: Spontaneous
  Country: US (occurrence: US)
  Receive Date: 20251117
  Receipt Date: 20251212
  Transmission Date: 20260118
  Serious: Yes (Other)
  Sender: JOHNSON AND JOHNSON
  Company Number: US-JNJFOC-20251152413

PATIENT
  Age: 21 Year

DRUGS (2)
  1. SPORANOX [Suspect]
     Active Substance: ITRACONAZOLE
     Indication: Fungal infection
  2. SPORANOX [Suspect]
     Active Substance: ITRACONAZOLE
     Indication: Dandruff

REACTIONS (2)
  - Hallucination [Unknown]
  - Product label issue [Unknown]
